FAERS Safety Report 11071914 (Version 3)
Quarter: 2018Q1

REPORT INFORMATION
  Report Type: Spontaneous
  Country: DE (occurrence: DE)
  Receive Date: 20150428
  Receipt Date: 20180329
  Transmission Date: 20180508
  Serious: Yes (Hospitalization, Other)
  Sender: FDA-Public Use
  Company Number: DE-AUROBINDO-AUR-APL-2015-03721

PATIENT
  Age: 64 Year
  Sex: Female

DRUGS (4)
  1. METOPROLOL. [Concomitant]
     Active Substance: METOPROLOL
     Indication: PRODUCT USED FOR UNKNOWN INDICATION
     Route: 065
  2. METFORMIN [Suspect]
     Active Substance: METFORMIN HYDROCHLORIDE
     Dosage: ()
  3. METFORMIN [Suspect]
     Active Substance: METFORMIN HYDROCHLORIDE
     Indication: TYPE 2 DIABETES MELLITUS
     Dosage: 1000 MG, TWO TIMES A DAY
     Route: 065
     Dates: start: 201202
  4. SIMVASTATIN. [Concomitant]
     Active Substance: SIMVASTATIN
     Indication: PRODUCT USED FOR UNKNOWN INDICATION
     Route: 065

REACTIONS (23)
  - Lactic acidosis [Unknown]
  - Bradycardia [Recovered/Resolved]
  - Aspiration pleural cavity [Recovered/Resolved]
  - Ascites [Recovered/Resolved]
  - Hypotonia [Recovered/Resolved]
  - Tachypnoea [Recovered/Resolved]
  - Hypotension [Recovered/Resolved]
  - Rectal haemorrhage [Recovered/Resolved]
  - Metabolic acidosis [Recovered/Resolved]
  - Ventricular tachycardia [Recovered/Resolved]
  - Hyperkalaemia [Recovered/Resolved]
  - Polyneuropathy [Unknown]
  - Blood urea increased [Recovered/Resolved]
  - Acute kidney injury [Unknown]
  - Drug level increased [Unknown]
  - Hyponatraemia [Recovered/Resolved]
  - Blood lactic acid increased [Recovered/Resolved]
  - Intestinal ischaemia [Recovered/Resolved]
  - Hypothermia [Recovered/Resolved]
  - Hypovolaemia [Recovered/Resolved]
  - Pulmonary oedema [Recovered/Resolved]
  - General physical health deterioration [Recovered/Resolved]
  - Blood creatinine increased [Recovered/Resolved]
